FAERS Safety Report 6670333-7 (Version None)
Quarter: 2010Q2

REPORT INFORMATION
  Report Type: 
  Country: None (occurrence: None)
  Receive Date: 20100405
  Receipt Date: 20100322
  Transmission Date: 20101027
  Serious: Yes (Death)
  Sender: FDA-Public Use
  Company Number: CNL-123041-NL

PATIENT
  Age: 37 Year
  Sex: Male

DRUGS (3)
  1. REMERON [Suspect]
     Indication: DEPRESSION
     Dosage: 30 MG; 45 MG; 30 MG;QD;PO
     Route: 048
     Dates: start: 20010331, end: 20010504
  2. ZYPREXA [Suspect]
     Indication: DELUSION
     Dosage: 5 MG;PO
     Route: 048
     Dates: start: 20010430, end: 20010503
  3. XANAX [Suspect]

REACTIONS (7)
  - AGITATION [None]
  - COMPLETED SUICIDE [None]
  - DRUG INEFFECTIVE [None]
  - FAMILY STRESS [None]
  - GUN SHOT WOUND [None]
  - HYPERHIDROSIS [None]
  - RESTLESS LEGS SYNDROME [None]
